FAERS Safety Report 23817947 (Version 4)
Quarter: 2024Q2

REPORT INFORMATION
  Report Type: Spontaneous
  Country: PT (occurrence: PT)
  Receive Date: 20240506
  Receipt Date: 20240531
  Transmission Date: 20240715
  Serious: Yes (Other)
  Sender: FDA-Public Use
  Company Number: PT-TOLMAR, INC.-24PT048881

PATIENT
  Age: 66 Year
  Sex: Male

DRUGS (3)
  1. ELIGARD [Suspect]
     Active Substance: LEUPROLIDE ACETATE
     Indication: Prostate cancer metastatic
     Dosage: UNK UNK, Q 6 MONTH
     Dates: start: 201909
  2. ELIGARD [Suspect]
     Active Substance: LEUPROLIDE ACETATE
     Indication: Prostate cancer metastatic
     Dosage: UNK
  3. DOCETAXEL [Suspect]
     Active Substance: DOCETAXEL\DOCETAXEL ANHYDROUS
     Indication: Prostate cancer metastatic
     Dosage: 75 MILLIGRAM PER SQUARE METRE, Q 3 WEEK
     Dates: start: 201909, end: 202001

REACTIONS (4)
  - Malignant neoplasm progression [Recovering/Resolving]
  - Addison^s disease [Recovering/Resolving]
  - Neuroendocrine carcinoma metastatic [Recovering/Resolving]
  - Metastases to adrenals [Recovering/Resolving]

NARRATIVE: CASE EVENT DATE: 20210101
